FAERS Safety Report 9377289 (Version 1)
Quarter: 2013Q3

REPORT INFORMATION
  Report Type: Spontaneous
  Country: US (occurrence: US)
  Receive Date: 20130701
  Receipt Date: 20130701
  Transmission Date: 20140515
  Serious: Yes (Hospitalization)
  Sender: FDA-Public Use
  Company Number: US-SANOFI-AVENTIS-2013SA064906

PATIENT
  Sex: Female

DRUGS (14)
  1. ARAVA [Suspect]
     Indication: RHEUMATOID ARTHRITIS
     Dates: start: 201210, end: 201212
  2. PLAQUENIL [Suspect]
     Indication: RHEUMATOID ARTHRITIS
  3. CELECOXIB [Suspect]
     Indication: RHEUMATOID ARTHRITIS
  4. METHOTREXATE [Suspect]
     Indication: RHEUMATOID ARTHRITIS
  5. REMICADE [Suspect]
     Indication: RHEUMATOID ARTHRITIS
  6. MOTRIN [Suspect]
     Indication: RHEUMATOID ARTHRITIS
  7. ASPIRIN [Suspect]
     Indication: RHEUMATOID ARTHRITIS
  8. PREDNISONE [Suspect]
     Indication: RHEUMATOID ARTHRITIS
  9. CORTISONE [Suspect]
     Indication: RHEUMATOID ARTHRITIS
  10. ORUDIS [Suspect]
     Indication: RHEUMATOID ARTHRITIS
  11. PROZAC [Suspect]
     Indication: RHEUMATOID ARTHRITIS
     Dosage: FREQUENCY: 2X/DAY
  12. KENALOG [Suspect]
     Indication: RHEUMATOID ARTHRITIS
     Dosage: FREQUENCY: EVERY 3 MONTH
  13. FOLIC ACID [Concomitant]
  14. LEVOTHYROXINE [Concomitant]
     Indication: THYROID DISORDER

REACTIONS (21)
  - Muscle spasms [Unknown]
  - Urticaria [Unknown]
  - Tremor [Unknown]
  - Adverse event [Unknown]
  - Gastrooesophageal reflux disease [Unknown]
  - Dyspepsia [Unknown]
  - Chromaturia [Unknown]
  - Renal disorder [Unknown]
  - Swelling [Unknown]
  - Mobility decreased [Unknown]
  - Somnolence [Unknown]
  - Feeling abnormal [Unknown]
  - Blood glucose abnormal [Unknown]
  - Gastric disorder [Unknown]
  - Vomiting projectile [Unknown]
  - Rash [Unknown]
  - Alopecia [Unknown]
  - Vision blurred [Unknown]
  - Hypersensitivity [Unknown]
  - Drug hypersensitivity [Unknown]
  - Drug ineffective [Unknown]
